FAERS Safety Report 18452185 (Version 1)
Quarter: 2020Q4

REPORT INFORMATION
  Report Type: Spontaneous
  Country: GB (occurrence: GB)
  Receive Date: 20201101
  Receipt Date: 20201101
  Transmission Date: 20210114
  Serious: No
  Sender: FDA-Public Use
  Company Number: None

PATIENT
  Age: 34 Year
  Sex: Female
  Weight: 62 kg

DRUGS (3)
  1. VITAMIN B, C, D [Concomitant]
  2. IRON [Concomitant]
     Active Substance: IRON
  3. SERTRALINE 50MG TABLETS [Suspect]
     Active Substance: SERTRALINE HYDROCHLORIDE
     Route: 048
     Dates: start: 20200901, end: 20201101

REACTIONS (1)
  - Chest pain [None]

NARRATIVE: CASE EVENT DATE: 20201101
